FAERS Safety Report 8811105 (Version 1)
Quarter: 2012Q4

REPORT INFORMATION
  Report Type: Spontaneous
  Country: US (occurrence: None)
  Receive Date: 20120924
  Receipt Date: 20120924
  Transmission Date: 20130627
  Serious: Yes (Hospitalization)
  Sender: FDA-Public Use
  Company Number: DSA_59732_2012

PATIENT
  Sex: Male

DRUGS (2)
  1. XENAZINE [Suspect]
     Indication: HUNTINGTON^S DISEASE
     Dosage: (DF)
     Dates: start: 20120813, end: 201208
  2. AMANTADINE [Suspect]
     Dosage: (DF)

REACTIONS (2)
  - Dyspnoea [None]
  - Condition aggravated [None]
